FAERS Safety Report 5015159-5 (Version None)
Quarter: 2006Q2

REPORT INFORMATION
  Report Type: 
  Country: None (occurrence: None)
  Receive Date: 20060530
  Receipt Date: 20060522
  Transmission Date: 20061013
  Serious: Yes (Hospitalization, Other)
  Sender: FDA-Public Use
  Company Number: 2006-05-1584

PATIENT
  Age: 55 Year
  Sex: Female

DRUGS (4)
  1. AERIUS [Suspect]
     Indication: SEASONAL ALLERGY
     Dosage: ORAL
     Route: 048
  2. MARCUMAR [Concomitant]
  3. EYE DROPS (NOS) [Concomitant]
  4. ....................................... [Concomitant]

REACTIONS (3)
  - HALLUCINATION [None]
  - INSOMNIA [None]
  - MENTAL DISORDER [None]
